FAERS Safety Report 20876414 (Version 1)
Quarter: 2022Q2

REPORT INFORMATION
  Report Type: Spontaneous
  Country: SK (occurrence: SK)
  Receive Date: 20220526
  Receipt Date: 20220526
  Transmission Date: 20220720
  Serious: Yes (Other)
  Sender: FDA-Public Use
  Company Number: SK-ASTELLAS-2022US016958

PATIENT
  Sex: Female

DRUGS (3)
  1. POSACONAZOLE [Interacting]
     Active Substance: POSACONAZOLE
     Indication: Product used for unknown indication
     Dosage: UNK
     Route: 065
  2. XOSPATA [Interacting]
     Active Substance: GILTERITINIB
     Indication: Product used for unknown indication
     Dosage: 2 DF (TABLET), ONCE DAILY (DOSE INCREASED)
     Route: 065
  3. XOSPATA [Interacting]
     Active Substance: GILTERITINIB
     Dosage: 1 DF (40 MG TABLET), ONCE DAILY
     Route: 065

REACTIONS (4)
  - Underdose [Unknown]
  - Off label use [Unknown]
  - Drug interaction [Unknown]
  - Acute febrile neutrophilic dermatosis [Unknown]
